FAERS Safety Report 6694381-6 (Version None)
Quarter: 2010Q2

REPORT INFORMATION
  Report Type: 
  Country: None (occurrence: None)
  Receive Date: 20100423
  Receipt Date: 20100413
  Transmission Date: 20101027
  Serious: Yes (Hospitalization)
  Sender: FDA-Public Use
  Company Number: IT-NOVOPROD-303600

PATIENT
  Sex: Male

DRUGS (1)
  1. ACTRAPHANE 30 [Suspect]
     Indication: TYPE 1 DIABETES MELLITUS
     Dosage: 24 IU, QD
     Route: 058
     Dates: start: 20081114

REACTIONS (2)
  - HYPOGLYCAEMIA [None]
  - VERTIGO [None]
